FAERS Safety Report 9038084 (Version 1)
Quarter: 2013Q1

REPORT INFORMATION
  Report Type: Report from Study
  Country: US (occurrence: US)
  Receive Date: 20130129
  Receipt Date: 20130129
  Transmission Date: 20140127
  Serious: No
  Sender: FDA-Public Use
  Company Number: US-ABBOTT-12P-163-0908358-00

PATIENT
  Sex: Female

DRUGS (4)
  1. LUPRON DEPOT 7.5 MG [Suspect]
     Indication: POLYCYSTIC OVARIES
     Route: 030
     Dates: start: 201112
  2. ZYRTEC [Concomitant]
     Indication: PRODUCT USED FOR UNKNOWN INDICATION
  3. NYQUIL [Concomitant]
     Indication: PRODUCT USED FOR UNKNOWN INDICATION
  4. ROBITUSSIN DM [Concomitant]
     Indication: PRODUCT USED FOR UNKNOWN INDICATION

REACTIONS (3)
  - Swelling [Not Recovered/Not Resolved]
  - Hot flush [Not Recovered/Not Resolved]
  - Off label use [Unknown]
